FAERS Safety Report 8850947 (Version 2)
Quarter: 2013Q1

REPORT INFORMATION
  Report Type: Spontaneous
  Country: SE (occurrence: SE)
  Receive Date: 20121019
  Receipt Date: 20130107
  Transmission Date: 20140127
  Serious: Yes (Hospitalization)
  Sender: FDA-Public Use
  Company Number: SE-NOVOPROD-361821

PATIENT
  Age: 56 Year
  Sex: Female
  Weight: 94 kg

DRUGS (12)
  1. VICTOZA [Suspect]
     Indication: TYPE 2 DIABETES MELLITUS
     Dosage: 0.6 MG, SINGLE
     Route: 058
     Dates: start: 2012
  2. VICTOZA [Suspect]
     Dosage: 1.2 MG, QD
  3. VICTOZA [Suspect]
     Dosage: 1.8 MG, QD
  4. VICTOZA [Suspect]
     Dosage: 1.2 MG, QD
  5. LANTUS [Suspect]
     Indication: TYPE 2 DIABETES MELLITUS
     Dosage: 104 IU, QD
     Route: 058
  6. LANTUS [Suspect]
     Dosage: 88 IU, QD
  7. LIPANTHYL [Concomitant]
     Dosage: 200 MG, SINGLE
  8. CRESTOR [Concomitant]
     Dosage: 10 MG, SINGLE
     Route: 048
  9. LASIX                              /00032601/ [Concomitant]
     Dosage: 30 MG, SINGLE
     Route: 048
  10. TAVEGYL [Concomitant]
  11. ATACAND [Concomitant]
     Dosage: 16 MG, SINGLE
     Route: 048
  12. TENORMIN [Concomitant]
     Dosage: 100 MG, SINGLE
     Route: 048

REACTIONS (2)
  - Breast cancer [Not Recovered/Not Resolved]
  - Blood glucose increased [Unknown]
